FAERS Safety Report 9144048 (Version 2)
Quarter: 2013Q2

REPORT INFORMATION
  Report Type: Spontaneous
  Country: NZ (occurrence: NZ)
  Receive Date: 20130306
  Receipt Date: 20130510
  Transmission Date: 20140414
  Serious: Yes (Death, Other)
  Sender: FDA-Public Use
  Company Number: NZ-ROCHE-1165188

PATIENT
  Age: 70 Year
  Sex: Male
  Weight: 80 kg

DRUGS (3)
  1. ACTILYSE [Suspect]
     Indication: THROMBOLYSIS
     Dosage: SINGLE DOSE
     Route: 065
     Dates: start: 10121122, end: 10121122
  2. ASPIRIN [Concomitant]
     Dosage: LONG TERM MEDICATION
     Route: 065
  3. DIPYRIDAMOLE [Concomitant]
     Route: 065

REACTIONS (4)
  - Cerebral haemorrhage [Fatal]
  - Convulsion [Recovered/Resolved]
  - Convulsion [Recovered/Resolved]
  - Wound haemorrhage [Recovered/Resolved]
